FAERS Safety Report 23994591 (Version 2)
Quarter: 2024Q3

REPORT INFORMATION
  Report Type: Report from Study
  Country: CA (occurrence: CA)
  Receive Date: 20240620
  Receipt Date: 20240709
  Transmission Date: 20241017
  Serious: No
  Sender: ABBVIE
  Company Number: CA-ABBVIE-5806628

PATIENT
  Sex: Male

DRUGS (1)
  1. SKYRIZI [Suspect]
     Active Substance: RISANKIZUMAB-RZAA
     Indication: Crohn^s disease
     Route: 058
     Dates: start: 20230927

REACTIONS (2)
  - Benign abdominal neoplasm [Not Recovered/Not Resolved]
  - Device issue [Unknown]
